FAERS Safety Report 25100242 (Version 1)
Quarter: 2025Q1

REPORT INFORMATION
  Report Type: Spontaneous
  Country: CN (occurrence: CN)
  Receive Date: 20250320
  Receipt Date: 20250320
  Transmission Date: 20250409
  Serious: Yes (Hospitalization, Other)
  Sender: BAYER HEALTHCARE PHARMACEUTICALS INC.
  Company Number: CN-BAYER-2025A038204

PATIENT
  Age: 66 Year
  Sex: Male

DRUGS (1)
  1. KERENDIA [Suspect]
     Active Substance: FINERENONE
     Indication: Dyspnoea
     Dosage: 10 MG, QD
     Route: 048
     Dates: start: 20250107, end: 20250119

REACTIONS (4)
  - Renal failure [Recovering/Resolving]
  - Hyperkalaemia [Recovering/Resolving]
  - Product prescribing issue [None]
  - Product use in unapproved indication [None]

NARRATIVE: CASE EVENT DATE: 20250107
